FAERS Safety Report 7974855-8 (Version None)
Quarter: 2011Q4

REPORT INFORMATION
  Report Type: 
  Country: None (occurrence: None)
  Receive Date: 20111213
  Receipt Date: 20111209
  Transmission Date: 20120403
  Serious: Yes (Other)
  Sender: FDA-Public Use
  Company Number: PT-GILEAD-2011-0047948

PATIENT
  Sex: Female

DRUGS (2)
  1. TRUVADA [Suspect]
     Indication: HIV INFECTION
     Dosage: 1 DF, QD
     Route: 048
     Dates: start: 20110401, end: 20111101
  2. VIRAMUNE [Suspect]
     Indication: HIV INFECTION
     Dosage: .
     Route: 048
     Dates: start: 20110401, end: 20111101

REACTIONS (3)
  - BLOOD HIV RNA INCREASED [None]
  - CD4 LYMPHOCYTES INCREASED [None]
  - DRUG INEFFECTIVE [None]
